FAERS Safety Report 8087315-3 (Version None)
Quarter: 2012Q1

REPORT INFORMATION
  Report Type: 
  Country: None (occurrence: None)
  Receive Date: 20120128
  Receipt Date: 20110425
  Transmission Date: 20120608
  Serious: No
  Sender: FDA-Public Use
  Company Number: US-ABBOTT-11P-163-0722143-00

PATIENT
  Sex: Female
  Weight: 64.014 kg

DRUGS (8)
  1. SINGULAIR [Concomitant]
     Indication: SEASONAL ALLERGY
  2. SIMVASTATIN [Concomitant]
     Indication: BLOOD CHOLESTEROL INCREASED
     Dates: start: 20110401, end: 20110401
  3. AMLODIPINE [Concomitant]
     Indication: HYPERTENSION
  4. METOPROLOL TARTRATE [Concomitant]
     Indication: HYPERTENSION
  5. FLUTICASONE PROPIONATE [Concomitant]
     Indication: ALLERGIC SINUSITIS
  6. TRAVATAN [Concomitant]
     Indication: GLAUCOMA
     Dosage: EYE
     Route: 047
  7. SIMVASTATIN [Concomitant]
  8. HUMIRA [Suspect]
     Indication: PSORIASIS
     Dates: start: 20110301

REACTIONS (5)
  - HYPERAESTHESIA [None]
  - INSOMNIA [None]
  - SEASONAL ALLERGY [None]
  - PAIN IN EXTREMITY [None]
  - DRUG INEFFECTIVE [None]
